FAERS Safety Report 8918850 (Version 1)
Quarter: 2012Q4

REPORT INFORMATION
  Report Type: Spontaneous
  Country: US (occurrence: None)
  Receive Date: 20121115
  Receipt Date: 20121115
  Transmission Date: 20130627
  Serious: No
  Sender: FDA-Public Use
  Company Number: None

PATIENT
  Age: 69 Year
  Sex: Male
  Weight: 66.8 kg

DRUGS (2)
  1. CISPLATIN [Suspect]
     Indication: ESOPHAGEAL ADENOCARCINOMA ABDOMINAL STAGE IV
     Dosage: 100 MG
  2. CISPLATIN [Suspect]
     Indication: ESOPHAGEAL ADENOCARCINOMA ABDOMINAL STAGE IV
     Dosage: 100 MG

REACTIONS (9)
  - Dyspnoea [None]
  - Flushing [None]
  - Lip swelling [None]
  - Skin warm [None]
  - Rash macular [None]
  - Throat tightness [None]
  - Angioedema [None]
  - Nausea [None]
  - Vomiting [None]
